FAERS Safety Report 5534019-4 (Version None)
Quarter: 2007Q4

REPORT INFORMATION
  Report Type: 
  Country: None (occurrence: None)
  Receive Date: 20071205
  Receipt Date: 20071128
  Transmission Date: 20080405
  Serious: Yes (Other)
  Sender: FDA-Public Use
  Company Number: PHNU2007DE03957

PATIENT
  Age: 69 Year
  Sex: Female
  Weight: 78 kg

DRUGS (2)
  1. ZOMETA [Suspect]
     Indication: METASTASES TO BONE
  2. BONDRONAT [Suspect]
     Indication: METASTASES TO BONE
     Route: 042

REACTIONS (3)
  - JAW OPERATION [None]
  - OSTEONECROSIS [None]
  - TOOTH EXTRACTION [None]
